FAERS Safety Report 9480950 (Version 1)
Quarter: 2013Q3

REPORT INFORMATION
  Report Type: Spontaneous
  Country: US (occurrence: US)
  Receive Date: 20130828
  Receipt Date: 20130828
  Transmission Date: 20140515
  Serious: Yes (Hospitalization)
  Sender: FDA-Public Use
  Company Number: US-AMGEN-KDL142407

PATIENT
  Age: 49 Year
  Sex: Female

DRUGS (1)
  1. ENBREL [Suspect]
     Indication: RHEUMATOID ARTHRITIS
     Dosage: 25 MG, 2 TIMES/WK
     Route: 058
     Dates: start: 20041130

REACTIONS (5)
  - Coma [Recovered/Resolved]
  - Renal failure [Recovered/Resolved]
  - Toxic shock syndrome [Recovered/Resolved]
  - Cystitis [Recovered/Resolved]
  - Gastrointestinal infection [Recovered/Resolved]
